FAERS Safety Report 15196914 (Version 4)
Quarter: 2018Q4

REPORT INFORMATION
  Report Type: Report from Study
  Country: IT (occurrence: IT)
  Receive Date: 20180725
  Receipt Date: 20181212
  Transmission Date: 20190204
  Serious: Yes (Other)
  Sender: FDA-Public Use
  Company Number: IT-PFIZER INC-2018294504

PATIENT
  Age: 44 Year
  Sex: Male

DRUGS (2)
  1. XANAX [Suspect]
     Active Substance: ALPRAZOLAM
     Indication: ANXIETY
     Dosage: 40 ML, SINGLE
     Route: 048
  2. OKI [Interacting]
     Active Substance: KETOPROFEN LYSINE
     Indication: MIGRAINE
     Dosage: 200 MG, TOTAL
     Route: 048

REACTIONS (7)
  - Toxicity to various agents [Recovering/Resolving]
  - Injury [Recovering/Resolving]
  - Alcohol interaction [Recovering/Resolving]
  - Fall [Recovering/Resolving]
  - Intentional self-injury [Recovering/Resolving]
  - Drug abuse [Recovering/Resolving]
  - Alcohol abuse [Recovering/Resolving]

NARRATIVE: CASE EVENT DATE: 20180609
